FAERS Safety Report 8044216-4 (Version None)
Quarter: 2012Q1

REPORT INFORMATION
  Report Type: 
  Country: None (occurrence: None)
  Receive Date: 20120113
  Receipt Date: 20111214
  Transmission Date: 20120608
  Serious: Yes (Hospitalization)
  Sender: FDA-Public Use
  Company Number: GB-ELI_LILLY_AND_COMPANY-GB201112001280

PATIENT
  Sex: Male

DRUGS (1)
  1. ZYPREXA [Suspect]

REACTIONS (4)
  - HALLUCINATION [None]
  - NIGHT SWEATS [None]
  - PRODUCT COUNTERFEIT [None]
  - COUNTERFEIT DRUG ADMINISTERED [None]
